FAERS Safety Report 7106299-5 (Version None)
Quarter: 2010Q4

REPORT INFORMATION
  Report Type: 
  Country: None (occurrence: None)
  Receive Date: 20101116
  Receipt Date: 20101108
  Transmission Date: 20110411
  Serious: Yes (Death)
  Sender: FDA-Public Use
  Company Number: JP-AMGEN-JPNCT2010000217

PATIENT

DRUGS (13)
  1. VECTIBIX [Suspect]
     Indication: COLORECTAL CANCER
     Dosage: 6 MG/KG, Q2WK
     Route: 041
     Dates: start: 20100723, end: 20100820
  2. MINOCYCLINE HYDROCHLORIDE [Concomitant]
     Indication: RASH
     Route: 048
  3. OMEPRAL [Concomitant]
     Route: 048
  4. LASIX [Concomitant]
     Route: 048
  5. SPIRONOLACTONE [Concomitant]
     Route: 048
  6. PRIMPERAN [Concomitant]
     Route: 048
  7. GASMOTIN [Concomitant]
     Route: 048
  8. ULCERLMIN [Concomitant]
     Route: 048
  9. NEOMALLERMIN TR [Concomitant]
     Indication: PRURITUS
     Route: 048
  10. LIVACT [Concomitant]
     Route: 048
  11. LAXODATE [Concomitant]
     Route: 048
  12. BETAMETHASONE [Concomitant]
     Route: 048
  13. RINDERON-VG [Concomitant]
     Indication: RASH
     Route: 062

REACTIONS (2)
  - COLORECTAL CANCER [None]
  - DRY SKIN [None]
